FAERS Safety Report 6844310-7 (Version None)
Quarter: 2010Q3

REPORT INFORMATION
  Report Type: 
  Country: None (occurrence: None)
  Receive Date: 20100715
  Receipt Date: 20100705
  Transmission Date: 20110219
  Serious: Yes (Hospitalization)
  Sender: FDA-Public Use
  Company Number: GR-ROCHE-713832

PATIENT
  Age: 50 Year
  Sex: Female

DRUGS (5)
  1. XELODA [Suspect]
     Indication: PRODUCT USED FOR UNKNOWN INDICATION
     Dosage: DOSE REPORTED AS 2 G
     Route: 048
     Dates: start: 20100101
  2. XELODA [Suspect]
     Dosage: 25 TABLET OF 500 MG EQUIVALENT TO 12.5 GRAMS, OVERDOSE. START DATE: JULY 2010.
     Route: 048
  3. ZOFRON [Suspect]
     Indication: PRODUCT USED FOR UNKNOWN INDICATION
     Dosage: START DATE: JULY 2010.
     Route: 048
  4. ZOLOFT [Suspect]
     Indication: PRODUCT USED FOR UNKNOWN INDICATION
     Dosage: START DATE: JULY 2010
     Route: 048
  5. HERCEPTIN [Concomitant]
     Route: 042

REACTIONS (2)
  - NO ADVERSE EVENT [None]
  - SUICIDAL IDEATION [None]
